FAERS Safety Report 20697489 (Version 3)
Quarter: 2023Q1

REPORT INFORMATION
  Report Type: Spontaneous
  Country: DE (occurrence: DE)
  Receive Date: 20220411
  Receipt Date: 20230113
  Transmission Date: 20230417
  Serious: Yes (Other)
  Sender: FDA-Public Use
  Company Number: DE-ROCHE-3014273

PATIENT
  Age: 58 Year
  Sex: Male
  Weight: 87 kg

DRUGS (1)
  1. TECFIDERA [Suspect]
     Active Substance: DIMETHYL FUMARATE
     Indication: Relapsing-remitting multiple sclerosis
     Route: 050
     Dates: start: 2015, end: 202007

REACTIONS (6)
  - Papillary cystadenoma lymphomatosum [Not Recovered/Not Resolved]
  - Multiple sclerosis [Not Recovered/Not Resolved]
  - Lymphopenia [Not Recovered/Not Resolved]
  - CD4 lymphocytes increased [Not Recovered/Not Resolved]
  - Vaccination failure [Unknown]
  - Papillary cystadenoma lymphomatosum [Recovered/Resolved]

NARRATIVE: CASE EVENT DATE: 20190906
